FAERS Safety Report 10671323 (Version 1)
Quarter: 2014Q4

REPORT INFORMATION
  Report Type: Spontaneous
  Country: US (occurrence: US)
  Receive Date: 20141223
  Receipt Date: 20141223
  Transmission Date: 20150529
  Serious: No
  Sender: FDA-Public Use
  Company Number: US-BAYER-2014-187995

PATIENT
  Age: 62 Year
  Sex: Male
  Weight: 73 kg

DRUGS (1)
  1. ALEVE PM [Suspect]
     Active Substance: DIPHENHYDRAMINE HYDROCHLORIDE\NAPROXEN SODIUM
     Indication: ARTHRITIS
     Dosage: 1 DF, PRN
     Route: 048
     Dates: start: 201412, end: 201412

REACTIONS (2)
  - Poor quality sleep [Recovered/Resolved]
  - Feeling abnormal [Recovered/Resolved]

NARRATIVE: CASE EVENT DATE: 201412
